FAERS Safety Report 12311393 (Version 2)
Quarter: 2016Q2

REPORT INFORMATION
  Report Type: Report from Study
  Country: AR (occurrence: AR)
  Receive Date: 20160427
  Receipt Date: 20160512
  Transmission Date: 20160815
  Serious: Yes (Hospitalization, Other)
  Sender: FDA-Public Use
  Company Number: PHHY2016AR055764

PATIENT
  Sex: Female

DRUGS (2)
  1. DIOVAN [Suspect]
     Active Substance: VALSARTAN
     Indication: HYPERTENSION
     Dosage: 160 MG, QD
     Route: 065
  2. AMLODIPINE [Concomitant]
     Active Substance: AMLODIPINE BESYLATE
     Indication: PRODUCT USED FOR UNKNOWN INDICATION
     Dosage: 2.5 MG, QD
     Route: 065

REACTIONS (9)
  - Glaucoma [Recovering/Resolving]
  - Eye irritation [Unknown]
  - Gastric disorder [Recovered/Resolved]
  - Breast cancer [Recovering/Resolving]
  - Intraocular pressure increased [Unknown]
  - Presbyopia [Unknown]
  - Blood pressure inadequately controlled [Recovering/Resolving]
  - Ocular hyperaemia [Unknown]
  - Cataract [Unknown]

NARRATIVE: CASE EVENT DATE: 2012
